FAERS Safety Report 13363076 (Version 1)
Quarter: 2017Q1

REPORT INFORMATION
  Report Type: Spontaneous
  Country: US (occurrence: US)
  Receive Date: 20170322
  Receipt Date: 20170322
  Transmission Date: 20170429
  Serious: Yes (Other)
  Sender: FDA-Public Use
  Company Number: None

PATIENT
  Age: 59 Year
  Sex: Male

DRUGS (1)
  1. REVLIMID [Suspect]
     Active Substance: LENALIDOMIDE
     Indication: PLASMA CELL MYELOMA
     Dosage: DAILY X14D/21D
     Route: 048
     Dates: start: 201402, end: 201407

REACTIONS (3)
  - Neuropathy peripheral [None]
  - Bone pain [None]
  - Drug ineffective [None]

NARRATIVE: CASE EVENT DATE: 20140730
